FAERS Safety Report 17408127 (Version 3)
Quarter: 2020Q1

REPORT INFORMATION
  Report Type: Spontaneous
  Country: US (occurrence: US)
  Receive Date: 20200212
  Receipt Date: 20200320
  Transmission Date: 20200409
  Serious: Yes (Hospitalization, Other)
  Sender: FDA-Public Use
  Company Number: US-GILEAD-2020-0450627

PATIENT
  Age: 52 Year
  Sex: Male

DRUGS (100)
  1. LEVETIRACETAM. [Concomitant]
     Active Substance: LEVETIRACETAM
  2. NEXIUM I.V. [Concomitant]
     Active Substance: ESOMEPRAZOLE SODIUM
  3. PHENADOZ [Concomitant]
     Active Substance: PROMETHAZINE HYDROCHLORIDE
  4. DAPSONE. [Concomitant]
     Active Substance: DAPSONE
  5. ANUCORT-HC [Concomitant]
     Active Substance: HYDROCORTISONE ACETATE
  6. CONDYLOX [Concomitant]
     Active Substance: PODOFILOX
  7. CIPROFLOXACIN. [Concomitant]
     Active Substance: CIPROFLOXACIN
  8. ESOMEPRAZOLE MAGNESIUM. [Concomitant]
     Active Substance: ESOMEPRAZOLE MAGNESIUM
  9. FLUOCINONIDE. [Concomitant]
     Active Substance: FLUOCINONIDE
  10. FENTANYL. [Concomitant]
     Active Substance: FENTANYL
  11. TRAZODONE [Concomitant]
     Active Substance: TRAZODONE HYDROCHLORIDE
  12. AMLODIPINE BESYLATE. [Concomitant]
     Active Substance: AMLODIPINE BESYLATE
  13. TIVICAY [Concomitant]
     Active Substance: DOLUTEGRAVIR SODIUM
  14. CYCLOPHOSPHAMIDE. [Concomitant]
     Active Substance: CYCLOPHOSPHAMIDE
  15. FUROSEMIDE. [Concomitant]
     Active Substance: FUROSEMIDE
  16. PROTONIX [Concomitant]
     Active Substance: PANTOPRAZOLE SODIUM
  17. KALETRA [Suspect]
     Active Substance: LOPINAVIR\RITONAVIR
     Indication: HIV INFECTION
     Route: 065
  18. TENOFOVIR TEVA [TENOFOVIR DISOPROXIL FUMARATE] [Suspect]
     Active Substance: TENOFOVIR DISOPROXIL FUMARATE
     Indication: HIV INFECTION
     Dosage: UNK
     Route: 065
     Dates: start: 201801
  19. ZIAGEN [Concomitant]
     Active Substance: ABACAVIR SULFATE
  20. NYSTATIN. [Concomitant]
     Active Substance: NYSTATIN
  21. FLUCONAZOLE. [Concomitant]
     Active Substance: FLUCONAZOLE
  22. AZITHROMYCIN ANHYDROUS. [Concomitant]
     Active Substance: AZITHROMYCIN ANHYDROUS
  23. MORPHINE SULFATE. [Concomitant]
     Active Substance: MORPHINE SULFATE
  24. MUPIROCIN. [Concomitant]
     Active Substance: MUPIROCIN
  25. ABACAVIR. [Concomitant]
     Active Substance: ABACAVIR
  26. ALPRAZOLAM. [Concomitant]
     Active Substance: ALPRAZOLAM
  27. MUCUS RELIEF [Concomitant]
     Active Substance: GUAIFENESIN
  28. AMMONIUM LACTATE. [Concomitant]
     Active Substance: AMMONIUM LACTATE
  29. LISINOPRIL. [Concomitant]
     Active Substance: LISINOPRIL
  30. ATENOLOL. [Concomitant]
     Active Substance: ATENOLOL
  31. IMIQUIMOD. [Concomitant]
     Active Substance: IMIQUIMOD
  32. BISACODYL. [Concomitant]
     Active Substance: BISACODYL
  33. VITAMIN B6 [Concomitant]
     Active Substance: PYRIDOXINE HYDROCHLORIDE
  34. ALLEGRA [Concomitant]
     Active Substance: FEXOFENADINE HYDROCHLORIDE
  35. CEPHALEXIN [CEFALEXIN] [Concomitant]
     Active Substance: CEPHALEXIN
  36. METRONIDAZOLE. [Concomitant]
     Active Substance: METRONIDAZOLE
  37. PROVENTIL HFA [Concomitant]
     Active Substance: ALBUTEROL SULFATE
  38. DOXYCYCLINE HYCLATE. [Concomitant]
     Active Substance: DOXYCYCLINE HYCLATE
  39. GABAPENTIN. [Concomitant]
     Active Substance: GABAPENTIN
  40. OFLOXACIN. [Concomitant]
     Active Substance: OFLOXACIN
  41. KETOCONAZOLE. [Concomitant]
     Active Substance: KETOCONAZOLE
  42. AMOXICILLIN. [Concomitant]
     Active Substance: AMOXICILLIN
  43. ORAVIG [Concomitant]
     Active Substance: MICONAZOLE
  44. PROMETHAZINE [Concomitant]
     Active Substance: PROMETHAZINE HYDROCHLORIDE
  45. SERTRALINE [Concomitant]
     Active Substance: SERTRALINE HYDROCHLORIDE
  46. ESCITALOPRAM [Concomitant]
     Active Substance: ESCITALOPRAM OXALATE
  47. PROPRANOLOL [Concomitant]
     Active Substance: PROPRANOLOL HYDROCHLORIDE
  48. FOLIC ACID. [Concomitant]
     Active Substance: FOLIC ACID
  49. ENSURE ACTIVE HIGH PROTEIN [Concomitant]
  50. OMEPRAZOLE. [Concomitant]
     Active Substance: OMEPRAZOLE
  51. CLOBETASOL PROPIONATE. [Concomitant]
     Active Substance: CLOBETASOL PROPIONATE
  52. VITAMIN B1 [Concomitant]
     Active Substance: THIAMINE HYDROCHLORIDE
  53. ELIQUIS [Concomitant]
     Active Substance: APIXABAN
  54. TENOFOVIR [Suspect]
     Active Substance: TENOFOVIR
     Indication: HIV INFECTION
     Dosage: UNK
     Route: 065
     Dates: start: 201803, end: 20180621
  55. ONDANSETRON [Concomitant]
     Active Substance: ONDANSETRON
  56. CHLORHEXIDINE [Concomitant]
     Active Substance: CHLORHEXIDINE
  57. CLOTRIMAZOLE AND BETAMETHASONE [Concomitant]
     Active Substance: BETAMETHASONE\CLOTRIMAZOLE
  58. POTASSIUM CHLORIDE. [Concomitant]
     Active Substance: POTASSIUM CHLORIDE
  59. HYDROCODONE/ACETAMINOPHEN [Concomitant]
     Active Substance: ACETAMINOPHEN\HYDROCODONE
  60. KENALOG [Concomitant]
     Active Substance: TRIAMCINOLONE ACETONIDE
  61. METHYLPREDNISOLONE. [Concomitant]
     Active Substance: METHYLPREDNISOLONE
  62. HALOBETASOL [Concomitant]
     Active Substance: HALOBETASOL PROPIONATE
  63. DOXEPIN [Concomitant]
     Active Substance: DOXEPIN
  64. DESCOVY [Concomitant]
     Active Substance: EMTRICITABINE\TENOFOVIR ALAFENAMIDE FUMARATE
  65. MAG G [Concomitant]
     Active Substance: MAGNESIUM GLUCONATE
  66. TERBINAFINE. [Concomitant]
     Active Substance: TERBINAFINE
  67. ZOLPIDEM [Concomitant]
     Active Substance: ZOLPIDEM TARTRATE
  68. FEXOFENADINE [Concomitant]
     Active Substance: FEXOFENADINE HYDROCHLORIDE
  69. ACEPHEN [PARACETAMOL] [Concomitant]
  70. WAL FEX [Concomitant]
     Active Substance: FEXOFENADINE HYDROCHLORIDE
  71. LEXAPRO [Concomitant]
     Active Substance: ESCITALOPRAM OXALATE
  72. FLUOXETINE [Concomitant]
     Active Substance: FLUOXETINE HYDROCHLORIDE
  73. TRIAMCINOLONE [Concomitant]
     Active Substance: TRIAMCINOLONE
  74. CLINDAMYCIN. [Concomitant]
     Active Substance: CLINDAMYCIN
  75. DIAZEPAM. [Concomitant]
     Active Substance: DIAZEPAM
  76. CALCIPOTRIENE. [Concomitant]
     Active Substance: CALCIPOTRIENE
  77. INSULIN [Concomitant]
     Active Substance: INSULIN NOS
  78. CLOTRIMAZOLE. [Concomitant]
     Active Substance: CLOTRIMAZOLE
  79. VERAMYST [Concomitant]
     Active Substance: FLUTICASONE FUROATE
  80. METOPROLOL. [Concomitant]
     Active Substance: METOPROLOL
  81. AVELOX [Concomitant]
     Active Substance: MOXIFLOXACIN HYDROCHLORIDE
  82. PROMETHEGAN [Concomitant]
     Active Substance: PROMETHAZINE HYDROCHLORIDE
  83. LEVOFLOXACIN. [Concomitant]
     Active Substance: LEVOFLOXACIN
  84. MOXIFLOXACIN. [Concomitant]
     Active Substance: MOXIFLOXACIN
  85. HYDROXYZINE HCL [Concomitant]
     Active Substance: HYDROXYZINE HYDROCHLORIDE
  86. PROAIR HFA [Concomitant]
     Active Substance: ALBUTEROL SULFATE
  87. VIREAD [Suspect]
     Active Substance: TENOFOVIR DISOPROXIL FUMARATE
     Indication: HIV INFECTION
     Dosage: UNK
     Route: 048
     Dates: start: 200912, end: 201801
  88. KLOR-CON [Concomitant]
     Active Substance: POTASSIUM CHLORIDE
  89. BACTROBAN [Concomitant]
     Active Substance: MUPIROCIN\MUPIROCIN CALCIUM
  90. MEGACE [Concomitant]
     Active Substance: MEGESTROL ACETATE
  91. AMOXI CLAV [Concomitant]
     Active Substance: AMOXICILLIN\CLAVULANATE POTASSIUM
  92. LOPERAMIDE [Concomitant]
     Active Substance: LOPERAMIDE
  93. SULFAMETH/TRIMETH [Concomitant]
     Active Substance: SULFAMETHOXAZOLE\TRIMETHOPRIM
  94. HYDROCORTISONE VALERATE. [Concomitant]
     Active Substance: HYDROCORTISONE VALERATE
  95. CETIRIZINE [Concomitant]
     Active Substance: CETIRIZINE HYDROCHLORIDE
  96. LORAZEPAM. [Concomitant]
     Active Substance: LORAZEPAM
  97. AMCINONIDE. [Concomitant]
     Active Substance: AMCINONIDE
  98. PREDNISONE. [Concomitant]
     Active Substance: PREDNISONE
  99. TACROLIMUS. [Concomitant]
     Active Substance: TACROLIMUS
  100. CALCITRIOL. [Concomitant]
     Active Substance: CALCITRIOL

REACTIONS (10)
  - Chronic kidney disease [Not Recovered/Not Resolved]
  - Anxiety [Unknown]
  - Pain [Unknown]
  - Anhedonia [Unknown]
  - Emotional distress [Unknown]
  - Renal tubular acidosis [Unknown]
  - Acute kidney injury [Unknown]
  - Anti-neutrophil cytoplasmic antibody positive vasculitis [Unknown]
  - Renal failure [Not Recovered/Not Resolved]
  - Economic problem [Unknown]

NARRATIVE: CASE EVENT DATE: 20100319
